FAERS Safety Report 22332814 (Version 1)
Quarter: 2023Q2

REPORT INFORMATION
  Report Type: Spontaneous
  Country: US (occurrence: US)
  Receive Date: 20230517
  Receipt Date: 20230517
  Transmission Date: 20230722
  Serious: Yes (Hospitalization, Other)
  Sender: FDA-Public Use
  Company Number: US-SA-SAC20230516000863

PATIENT
  Sex: Female

DRUGS (1)
  1. DUPIXENT [Suspect]
     Active Substance: DUPILUMAB
     Dosage: 300 MG, OTHER
     Route: 058
     Dates: end: 2023

REACTIONS (5)
  - Acute kidney injury [Unknown]
  - Dyspnoea [Unknown]
  - Urinary tract infection [Unknown]
  - Hypertension [Unknown]
  - Eczema [Unknown]
